FAERS Safety Report 7748345-1 (Version None)
Quarter: 2011Q3

REPORT INFORMATION
  Report Type: 
  Country: None (occurrence: None)
  Receive Date: 20110913
  Receipt Date: 20110906
  Transmission Date: 20111222
  Serious: Yes (Other)
  Sender: FDA-Public Use
  Company Number: PHEH2008US03152

PATIENT
  Sex: Female

DRUGS (4)
  1. AREDIA [Suspect]
  2. METHADONE HCL [Concomitant]
  3. MORPHINE [Concomitant]
     Dosage: 40 MG, UNK
  4. ZOMETA [Suspect]

REACTIONS (18)
  - ANXIETY [None]
  - DIABETES MELLITUS [None]
  - CEREBROVASCULAR ACCIDENT [None]
  - ASTHMA [None]
  - BREAST CANCER [None]
  - OSTEONECROSIS OF JAW [None]
  - INJURY [None]
  - BONE LOSS [None]
  - ARTHRITIS [None]
  - DEPRESSION [None]
  - SCAR [None]
  - BONE NEOPLASM MALIGNANT [None]
  - INFECTION [None]
  - EMOTIONAL DISTRESS [None]
  - PHYSICAL DISABILITY [None]
  - JAW FRACTURE [None]
  - PAIN [None]
  - MULTIPLE MYELOMA [None]
